FAERS Safety Report 7382634-8 (Version None)
Quarter: 2011Q1

REPORT INFORMATION
  Report Type: 
  Country: None (occurrence: None)
  Receive Date: 20110329
  Receipt Date: 20110322
  Transmission Date: 20110831
  Serious: No
  Sender: FDA-Public Use
  Company Number: US-BAYER-2011-026520

PATIENT
  Sex: Female
  Weight: 71.655 kg

DRUGS (2)
  1. ALEVE (CAPLET) [Suspect]
     Indication: SELF INJURIOUS BEHAVIOUR
     Dosage: COUNT BOTTLE UNKNOWN
     Route: 048
     Dates: start: 20110322
  2. ALCOHOL [ETHANOL] [Concomitant]

REACTIONS (1)
  - NO ADVERSE EVENT [None]
